FAERS Safety Report 22030147 (Version 1)
Quarter: 2023Q1

REPORT INFORMATION
  Report Type: Spontaneous
  Country: US (occurrence: None)
  Receive Date: 20230222
  Receipt Date: 20230222
  Transmission Date: 20230417
  Serious: Yes (Other)
  Sender: FDA-Public Use
  Company Number: None

PATIENT
  Age: 9 Year
  Sex: Male
  Weight: 29.6 kg

DRUGS (1)
  1. SKYTROFA [Suspect]
     Active Substance: LONAPEGSOMATROPIN-TCGD
     Dosage: FREQUENCY : WEEKLY;?
     Route: 058
     Dates: start: 20220609, end: 20230219

REACTIONS (5)
  - Product deposit [None]
  - Device connection issue [None]
  - Device physical property issue [None]
  - Aggression [None]
  - Fear [None]

NARRATIVE: CASE EVENT DATE: 20230204
